FAERS Safety Report 9681030 (Version 1)
Quarter: 2013Q4

REPORT INFORMATION
  Report Type: Spontaneous
  Country: US (occurrence: None)
  Receive Date: 20131108
  Receipt Date: 20131108
  Transmission Date: 20140711
  Serious: No
  Sender: FDA-Public Use
  Company Number: None

PATIENT
  Age: 54 Year
  Sex: Female

DRUGS (1)
  1. MEIKNIST [Suspect]
     Indication: MALIGNANT MELANOMA
     Route: 048
     Dates: start: 20130806

REACTIONS (5)
  - Pruritus [None]
  - Epistaxis [None]
  - Dry skin [None]
  - Pain in jaw [None]
  - Toothache [None]
